FAERS Safety Report 12406406 (Version 1)
Quarter: 2016Q2

REPORT INFORMATION
  Report Type: Spontaneous
  Country: DE (occurrence: DE)
  Receive Date: 20160526
  Receipt Date: 20160526
  Transmission Date: 20160815
  Serious: Yes (Other)
  Sender: FDA-Public Use
  Company Number: DE-IPSEN BIOPHARMACEUTICALS, INC.-2016-04504

PATIENT
  Sex: Male

DRUGS (3)
  1. AZZALURE [Suspect]
     Active Substance: BOTULINUM TOXIN TYPE A
     Indication: PRODUCT USE ISSUE
  2. AZZALURE [Suspect]
     Active Substance: BOTULINUM TOXIN TYPE A
     Indication: TEMPOROMANDIBULAR JOINT SYNDROME
  3. AZZALURE [Suspect]
     Active Substance: BOTULINUM TOXIN TYPE A
     Indication: TEMPOROMANDIBULAR JOINT SYNDROME
     Dosage: NOT REPORTED
     Route: 065
     Dates: start: 2016, end: 2016

REACTIONS (1)
  - Deafness permanent [Not Recovered/Not Resolved]

NARRATIVE: CASE EVENT DATE: 2016
